FAERS Safety Report 10083696 (Version 1)
Quarter: 2014Q2

REPORT INFORMATION
  Report Type: Spontaneous
  Country: GB (occurrence: GB)
  Receive Date: 20140417
  Receipt Date: 20140417
  Transmission Date: 20141212
  Serious: Yes (Other)
  Sender: FDA-Public Use
  Company Number: GB-MYLANLABS-2014S1008081

PATIENT
  Age: 78 Year
  Sex: Male

DRUGS (4)
  1. TAMSULOSIN [Suspect]
     Indication: URINARY RETENTION
     Route: 048
     Dates: start: 20140303
  2. CLEXANE [Concomitant]
     Indication: PROPHYLAXIS
     Dosage: 40MG/0.4ML
     Route: 058
  3. DOCUSATE [Concomitant]
     Route: 048
  4. LAXIDO /07474401/ [Concomitant]
     Route: 048

REACTIONS (2)
  - Pruritus [Unknown]
  - Lymphoedema [Unknown]
